FAERS Safety Report 5039330-1 (Version None)
Quarter: 2006Q2

REPORT INFORMATION
  Report Type: 
  Country: None (occurrence: None)
  Receive Date: 20060629
  Receipt Date: 20060619
  Transmission Date: 20061013
  Serious: Yes (Hospitalization)
  Sender: FDA-Public Use
  Company Number: US-JNJFOC-20060605392

PATIENT
  Sex: Male
  Weight: 74.84 kg

DRUGS (5)
  1. DURAGESIC-100 [Suspect]
     Indication: PAIN
     Route: 062
  2. NORCO [Concomitant]
     Route: 048
  3. VALIUM [Concomitant]
     Indication: ANXIETY
     Route: 048
  4. PAXIL [Concomitant]
     Indication: DEPRESSION
     Route: 048
  5. SOMA [Concomitant]
     Route: 048

REACTIONS (1)
  - MALAISE [None]
